FAERS Safety Report 5852894-0 (Version None)
Quarter: 2008Q3

REPORT INFORMATION
  Report Type: 
  Country: None (occurrence: None)
  Receive Date: 20080821
  Receipt Date: 20080815
  Transmission Date: 20090109
  Serious: Yes (Other)
  Sender: FDA-Public Use
  Company Number: PHEH2008US07226

PATIENT

DRUGS (1)
  1. ZOMETA [Suspect]

REACTIONS (5)
  - INFECTION [None]
  - ORAL DISCOMFORT [None]
  - OSTEONECROSIS [None]
  - PAIN [None]
  - TOOTH EXTRACTION [None]
